FAERS Safety Report 4800758-3 (Version None)
Quarter: 2005Q4

REPORT INFORMATION
  Report Type: 
  Country: None (occurrence: None)
  Receive Date: 20051013
  Receipt Date: 20051004
  Transmission Date: 20060501
  Serious: Yes (Death, Hospitalization)
  Sender: FDA-Public Use
  Company Number: CLOF-10101

PATIENT
  Age: 60 Year
  Sex: Male

DRUGS (17)
  1. CLOFARABINE [Suspect]
     Indication: ACUTE MYELOID LEUKAEMIA
     Dosage: 20 MG/M2 QD IV
     Route: 042
     Dates: start: 20050520, end: 20050524
  2. G-CSF [Concomitant]
  3. ACYCLOVIR [Concomitant]
  4. NYSTATIN [Concomitant]
  5. ITRACONAZOLE [Concomitant]
  6. GENTAMICIN [Concomitant]
  7. CEFTAZIDIME [Concomitant]
  8. CLARITHROMYCIN [Concomitant]
  9. IMIPENEM [Concomitant]
  10. LEVOFLOXACIN [Concomitant]
  11. CERTRALINE [Concomitant]
  12. DEFERIPRONE [Concomitant]
  13. CODEINE PHOSPHATE [Concomitant]
  14. PETHIDINE [Concomitant]
  15. PARACETAMOL [Concomitant]
  16. CHLORPHENIRAMINE MALEATE [Concomitant]
  17. HYDROCORTISONE [Concomitant]

REACTIONS (5)
  - CEREBRAL HAEMORRHAGE [None]
  - FEBRILE NEUTROPENIA [None]
  - NEUTROPENIC SEPSIS [None]
  - PNEUMONIA [None]
  - THROMBOCYTOPENIA [None]
